FAERS Safety Report 18555060 (Version 2)
Quarter: 2020Q4

REPORT INFORMATION
  Report Type: Report from Study
  Country: PL (occurrence: PL)
  Receive Date: 20201127
  Receipt Date: 20201221
  Transmission Date: 20210114
  Serious: Yes (Hospitalization)
  Sender: FDA-Public Use
  Company Number: PL-ROCHE-2677261

PATIENT
  Age: 41 Year
  Sex: Female
  Weight: 48 kg

DRUGS (17)
  1. METAMIZOLE [Concomitant]
     Active Substance: METAMIZOLE
     Indication: ANALGESIC THERAPY
     Route: 042
     Dates: start: 20200922
  2. RED BLOOD CELL CONCENTRATE [Concomitant]
     Active Substance: HUMAN RED BLOOD CELL
     Indication: ANAEMIA
     Route: 042
     Dates: start: 20201109, end: 20201110
  3. MTIG 7192A [Suspect]
     Active Substance: TIRAGOLUMAB
     Indication: CERVIX CARCINOMA
     Dosage: DOSE LAST STUDY DRUG ADMIN PRIOR AE: 600 MG ON 18/SEP/2020
     Route: 042
     Dates: start: 20200828
  4. ELICEA [Concomitant]
     Active Substance: ESCITALOPRAM OXALATE
     Route: 048
     Dates: start: 20201008
  5. OXYCODONE [Concomitant]
     Active Substance: OXYCODONE
     Indication: ANALGESIC THERAPY
     Route: 048
     Dates: start: 20200526
  6. ATEZOLIZUMAB. [Suspect]
     Active Substance: ATEZOLIZUMAB
     Indication: CERVIX CARCINOMA
     Dosage: DOSE LAST STUDY DRUG ADMIN PRIOR SAE: 1200 MG ON 18/SEP/2020
     Route: 041
     Dates: start: 20200828
  7. SYSTEN [Concomitant]
     Active Substance: ESTRADIOL
     Indication: HORMONE REPLACEMENT THERAPY
     Dosage: 50 UG
     Route: 062
     Dates: start: 20170915
  8. CLEXANE [Concomitant]
     Active Substance: ENOXAPARIN SODIUM
     Route: 058
     Dates: start: 20200818
  9. LINEZOLID. [Concomitant]
     Active Substance: LINEZOLID
     Route: 042
     Dates: start: 20201117
  10. MIRTOR [Concomitant]
     Route: 048
     Dates: start: 20200928
  11. RED BLOOD CELL CONCENTRATE [Concomitant]
     Active Substance: HUMAN RED BLOOD CELL
     Route: 042
     Dates: start: 20201118, end: 20201119
  12. TARGIN [Concomitant]
     Active Substance: NALOXONE HYDROCHLORIDE\OXYCODONE HYDROCHLORIDE
     Indication: ANALGESIC THERAPY
     Route: 048
     Dates: start: 20200813
  13. METYPRED [Concomitant]
     Active Substance: METHYLPREDNISOLONE
     Indication: HEPATIC ENZYME INCREASED
     Route: 048
     Dates: start: 20201109, end: 20201116
  14. FLUCONAZOLE. [Concomitant]
     Active Substance: FLUCONAZOLE
     Dates: start: 20201022, end: 20201101
  15. PARACETAMOL [Concomitant]
     Active Substance: ACETAMINOPHEN
     Indication: ANALGESIC THERAPY
     Route: 042
     Dates: start: 20200922
  16. TAROMENTIN [Concomitant]
     Indication: URINARY TRACT INFECTION
     Route: 042
     Dates: start: 20100925, end: 20201001
  17. EUTHYROX [Concomitant]
     Active Substance: LEVOTHYROXINE SODIUM
     Dosage: 100 UG
     Route: 048

REACTIONS (3)
  - Urinary tract infection [Recovered/Resolved]
  - Enterococcal sepsis [Recovering/Resolving]
  - Urinary tract infection enterococcal [Recovering/Resolving]

NARRATIVE: CASE EVENT DATE: 20200911
